FAERS Safety Report 8301647-2 (Version None)
Quarter: 2012Q2

REPORT INFORMATION
  Report Type: 
  Country: None (occurrence: None)
  Receive Date: 20120420
  Receipt Date: 20120410
  Transmission Date: 20120825
  Serious: Yes (Life-Threatening, Hospitalization)
  Sender: FDA-Public Use
  Company Number: FR-ROCHE-1058602

PATIENT
  Sex: Male

DRUGS (4)
  1. CLONAZEPAM [Suspect]
     Indication: SUICIDE ATTEMPT
     Route: 048
     Dates: start: 20120307, end: 20120307
  2. ATARAX (FRANCE) [Suspect]
     Indication: SUICIDE ATTEMPT
     Route: 048
     Dates: start: 20120307, end: 20120307
  3. ACETAMINOPHEN [Suspect]
     Indication: SUICIDE ATTEMPT
     Route: 048
     Dates: start: 20120307, end: 20120307
  4. LYRICA [Suspect]
     Indication: SUICIDE ATTEMPT
     Route: 048
     Dates: start: 20120307, end: 20120307

REACTIONS (3)
  - COMA [None]
  - CYTOLYTIC HEPATITIS [None]
  - METABOLIC ACIDOSIS [None]
